FAERS Safety Report 14629688 (Version 1)
Quarter: 2018Q1

REPORT INFORMATION
  Report Type: Spontaneous
  Country: FR (occurrence: FR)
  Receive Date: 20180313
  Receipt Date: 20180313
  Transmission Date: 20180509
  Serious: Yes (Disabling, Other)
  Sender: FDA-Public Use
  Company Number: FR-MERCK KGAA-2043593

PATIENT
  Age: 64 Year
  Sex: Female

DRUGS (7)
  1. L-THYROXINE [Concomitant]
     Active Substance: LEVOTHYROXINE
  2. LAMALINE [Concomitant]
     Active Substance: ACETAMINOPHEN\CAFFEINE\OPIUM
  3. SPIRONOLACTONE. [Concomitant]
     Active Substance: SPIRONOLACTONE
  4. NOVOTHYROX [Suspect]
     Active Substance: LEVOTHYROXINE SODIUM
     Indication: AUTOIMMUNE THYROIDITIS
  5. MONOPROST [Concomitant]
     Active Substance: LATANOPROST
  6. ESOMEPRAZOLE [Concomitant]
     Active Substance: ESOMEPRAZOLE
  7. PINAVERUM BIOGARAN [Concomitant]

REACTIONS (29)
  - Burning sensation [None]
  - Phobia of driving [None]
  - Loss of libido [None]
  - Middle insomnia [None]
  - Constipation [None]
  - Vertigo [None]
  - Asthenia [None]
  - Fear [None]
  - Insomnia [None]
  - Vision blurred [None]
  - Somnolence [None]
  - Loss of personal independence in daily activities [Recovered/Resolved]
  - Anxiety [None]
  - Sleep disorder [None]
  - Hypokinesia [None]
  - Loss of personal independence in daily activities [None]
  - Palpitations [None]
  - Muscular weakness [None]
  - Coma [None]
  - Fatigue [None]
  - Flatulence [None]
  - Amnesia [None]
  - Flat affect [None]
  - Depression [None]
  - Pain [None]
  - Balance disorder [None]
  - Feeling abnormal [None]
  - Myalgia [None]
  - Social avoidant behaviour [None]

NARRATIVE: CASE EVENT DATE: 2017
